FAERS Safety Report 5537917-0 (Version None)
Quarter: 2007Q4

REPORT INFORMATION
  Report Type: 
  Country: None (occurrence: None)
  Receive Date: 20071207
  Receipt Date: 20071204
  Transmission Date: 20080405
  Serious: Yes (Other)
  Sender: FDA-Public Use
  Company Number: GB-ROXANE LABORATORIES, INC-2007-BP-25559RO

PATIENT
  Age: 48 Year
  Sex: Female

DRUGS (3)
  1. METHOTREXATE [Suspect]
     Indication: CONNECTIVE TISSUE DISORDER
  2. HYDROXYCHLOROQUINE SULFATE [Suspect]
     Indication: CONNECTIVE TISSUE DISORDER
  3. PREDNISOLONE [Suspect]
     Indication: CONNECTIVE TISSUE DISORDER

REACTIONS (11)
  - COUGH [None]
  - DRUG INEFFECTIVE [None]
  - EPSTEIN-BARR VIRUS TEST POSITIVE [None]
  - FATIGUE [None]
  - LYMPHOPROLIFERATIVE DISORDER [None]
  - NIGHT SWEATS [None]
  - PYREXIA [None]
  - RAYNAUD'S PHENOMENON [None]
  - SCLERODACTYLIA [None]
  - SKIN ULCER [None]
  - WEIGHT DECREASED [None]
